FAERS Safety Report 17882203 (Version 1)
Quarter: 2020Q2

REPORT INFORMATION
  Report Type: Spontaneous
  Country: FR (occurrence: FR)
  Receive Date: 20200610
  Receipt Date: 20200610
  Transmission Date: 20200714
  Serious: Yes (Hospitalization)
  Sender: FDA-Public Use
  Company Number: FR-PURDUE-GBR-2020-0077082

PATIENT
  Age: 58 Year
  Sex: Male

DRUGS (1)
  1. OXYNORMORO [Suspect]
     Active Substance: OXYCODONE HYDROCHLORIDE
     Indication: POISONING
     Dosage: 25 DF,[TOTAL] [STRENGTH 5 MG]
     Route: 048
     Dates: start: 20170719, end: 20190719

REACTIONS (1)
  - Pancreatitis acute [Recovering/Resolving]

NARRATIVE: CASE EVENT DATE: 20170720
